FAERS Safety Report 18105949 (Version 3)
Quarter: 2020Q4

REPORT INFORMATION
  Report Type: Report from Study
  Country: UA (occurrence: UA)
  Receive Date: 20200804
  Receipt Date: 20201028
  Transmission Date: 20210113
  Serious: Yes (Hospitalization)
  Sender: FDA-Public Use
  Company Number: UA-TAIHO ONCOLOGY  INC-IM-2020-00509

PATIENT
  Age: 48 Year
  Sex: Male
  Weight: 108 kg

DRUGS (4)
  1. BEVACIZUMAB. [Suspect]
     Active Substance: BEVACIZUMAB
     Indication: COLON CANCER METASTATIC
     Dosage: 540 MG (5 MG/KG), IV, ON DAY 1 AND 15 OF EACH 28 DAY CYCLE
     Route: 042
     Dates: start: 20191227, end: 20200521
  2. LONSURF [Suspect]
     Active Substance: TIPIRACIL HYDROCHLORIDE\TRIFLURIDINE
     Indication: COLON CANCER METASTATIC
     Dosage: 75 MG (35 MG/M2) BID, ORALLY, ON DAYS 1-14 OF EACH 28-DAY CYCLE
     Route: 048
     Dates: start: 20191227, end: 20200107
  3. LONSURF [Suspect]
     Active Substance: TIPIRACIL HYDROCHLORIDE\TRIFLURIDINE
     Dosage: 75 MG (35 MG/M2) BID, ORALLY, ON DAYS 1-14 OF EACH 28-DAY CYCLE
     Route: 048
     Dates: start: 20200128, end: 20200208
  4. LONSURF [Suspect]
     Active Substance: TIPIRACIL HYDROCHLORIDE\TRIFLURIDINE
     Dosage: 75 MG (35 MG/M2) BID, ORALLY, ON DAYS 1-14 OF EACH 28-DAY CYCLE
     Route: 048
     Dates: start: 20200228, end: 20200601

REACTIONS (2)
  - Pneumonia [Not Recovered/Not Resolved]
  - Lung abscess [Not Recovered/Not Resolved]

NARRATIVE: CASE EVENT DATE: 20200611
